FAERS Safety Report 7574765-4 (Version None)
Quarter: 2011Q2

REPORT INFORMATION
  Report Type: 
  Country: None (occurrence: None)
  Receive Date: 20110627
  Receipt Date: 20081122
  Transmission Date: 20111010
  Serious: Yes (Hospitalization, Other)
  Sender: FDA-Public Use
  Company Number: US-BAYER-200839408NA

PATIENT
  Age: 51 Year
  Sex: Female
  Weight: 63 kg

DRUGS (11)
  1. BENAZEPRIL HYDROCHLORIDE [Concomitant]
     Dosage: 40MG
  2. LASIX [Concomitant]
  3. FENTANYL [Concomitant]
     Dosage: UNK
     Route: 042
     Dates: start: 20070228, end: 20070228
  4. TRASYLOL [Suspect]
     Indication: PRODUCT USED FOR UNKNOWN INDICATION
     Dosage: UNK
     Route: 042
     Dates: start: 20070228
  5. ZOSYN [Concomitant]
     Dosage: UNK
     Route: 042
     Dates: start: 20070228, end: 20070228
  6. PROTAMINE SULFATE [Concomitant]
     Dosage: UNK
     Route: 042
     Dates: start: 20070228, end: 20070228
  7. VERSED [Concomitant]
     Dosage: UNK
     Route: 042
     Dates: start: 20070228, end: 20070228
  8. CRESTOR [Concomitant]
     Dosage: 20MG
  9. ROSUVASTATIN [Concomitant]
  10. HEPARIN [Concomitant]
     Dosage: UNK
     Route: 042
     Dates: start: 20070228, end: 20070228
  11. MORPHINE SULFATE [Concomitant]
     Dosage: 2MG
     Route: 042
     Dates: start: 20070228, end: 20070228

REACTIONS (11)
  - RENAL INJURY [None]
  - EMOTIONAL DISTRESS [None]
  - UNEVALUABLE EVENT [None]
  - PAIN [None]
  - RENAL FAILURE [None]
  - ANXIETY [None]
  - RENAL IMPAIRMENT [None]
  - STRESS [None]
  - FEAR [None]
  - ANHEDONIA [None]
  - INJURY [None]
